FAERS Safety Report 9816051 (Version 1)
Quarter: 2014Q1

REPORT INFORMATION
  Report Type: Spontaneous
  Country: US (occurrence: US)
  Receive Date: 20140114
  Receipt Date: 20140114
  Transmission Date: 20141002
  Serious: Yes (Death)
  Sender: FDA-Public Use
  Company Number: US-PFIZER INC-2014006859

PATIENT
  Age: 58 Year
  Sex: Male

DRUGS (8)
  1. AMLODIPINE BESILATE [Suspect]
     Dosage: UNK
     Route: 048
  2. GABAPENTIN [Suspect]
     Route: 048
  3. ALPRAZOLAM [Suspect]
     Route: 048
  4. METOPROLOL [Suspect]
     Dosage: UNK
     Route: 048
  5. ACETAMINOPHEN/OXYCODONE [Suspect]
     Route: 048
  6. AMITRIPTYLINE [Suspect]
     Route: 048
  7. TEMAZEPAM [Suspect]
     Route: 048
  8. DIPHENHYDRAMINE [Suspect]
     Dosage: UNK
     Route: 048

REACTIONS (1)
  - Completed suicide [Fatal]
